FAERS Safety Report 5842561-1 (Version None)
Quarter: 2008Q3

REPORT INFORMATION
  Report Type: 
  Country: None (occurrence: None)
  Receive Date: 20080812
  Receipt Date: 20080801
  Transmission Date: 20090109
  Serious: Yes (Hospitalization)
  Sender: FDA-Public Use
  Company Number: ES-PFIZER INC-2008064160

PATIENT
  Age: 77 Year
  Sex: Male

DRUGS (5)
  1. ALDACTONE [Suspect]
     Indication: ASCITES
     Route: 048
     Dates: start: 20080626, end: 20080702
  2. SEGURIL [Interacting]
     Indication: ASCITES
     Route: 048
     Dates: start: 20080626, end: 20080702
  3. ENALAPRIL MALEATE [Concomitant]
     Indication: HYPERTENSION
     Route: 048
  4. OMEPRAZOLE [Concomitant]
     Route: 048
  5. SOLGOL [Concomitant]
     Indication: VARICES OESOPHAGEAL
     Dosage: DAILY DOSE:20MG
     Route: 048

REACTIONS (2)
  - DRUG INTERACTION [None]
  - HEPATIC ENCEPHALOPATHY [None]
